FAERS Safety Report 15864884 (Version 3)
Quarter: 2019Q2

REPORT INFORMATION
  Report Type: Report from Study
  Country: HU (occurrence: HU)
  Receive Date: 20190124
  Receipt Date: 20190408
  Transmission Date: 20190711
  Serious: Yes (Death, Life-Threatening, Hospitalization)
  Sender: FDA-Public Use
  Company Number: HU-CELGENEUS-HUN-20190106925

PATIENT
  Age: 73 Year
  Sex: Female
  Weight: 94 kg

DRUGS (15)
  1. AZACITIDINE INJECTABLE [Suspect]
     Active Substance: AZACITIDINE
     Indication: ACUTE MYELOID LEUKAEMIA
     Route: 058
     Dates: start: 20180618
  2. SUPRAX [Concomitant]
     Active Substance: CEFIXIME
     Indication: ANTIBIOTIC PROPHYLAXIS
     Dosage: 400 MILLIGRAM
     Route: 065
     Dates: start: 20180710
  3. EMETRON [Concomitant]
     Indication: NAUSEA
     Dosage: 12 GRAM
     Route: 065
     Dates: start: 20180618
  4. ZANTAC [Concomitant]
     Active Substance: RANITIDINE HYDROCHLORIDE
     Indication: PROPHYLAXIS AGAINST GASTROINTESTINAL ULCER
     Dosage: 12 GRAM
     Route: 065
     Dates: start: 20180713
  5. PRACINOSTAT [Concomitant]
     Active Substance: PRACINOSTAT
     Indication: ACUTE MYELOID LEUKAEMIA
     Dosage: 25.7143 MILLIGRAM
     Route: 048
     Dates: start: 20180618, end: 20180706
  6. MERONEM [Concomitant]
     Active Substance: MEROPENEM
     Indication: PNEUMONIA
     Dosage: 3 GRAM
     Route: 065
     Dates: start: 20180702, end: 20180709
  7. MILURIT [Concomitant]
     Active Substance: ALLOPURINOL
     Indication: PROPHYLAXIS
     Route: 065
     Dates: start: 20180529
  8. LACTATED RINGERS SOLUTION [Concomitant]
     Active Substance: CALCIUM CHLORIDE\POTASSIUM CHLORIDE\SODIUM CHLORIDE\SODIUM LACTATE
     Indication: CHRONIC KIDNEY DISEASE
     Dosage: 1500 MILLILITER
     Route: 065
     Dates: start: 20180713
  9. NORMODIPINE [Concomitant]
     Active Substance: AMLODIPINE BESYLATE
     Indication: HYPERTENSION
     Dosage: 5 MILLIGRAM
     Route: 065
     Dates: start: 20180621
  10. COVEREX [Concomitant]
     Active Substance: PERINDOPRIL ERBUMINE
     Indication: HYPERTENSION
     Dosage: 10 MILLIGRAM
     Route: 065
     Dates: start: 20180621
  11. AMIKIN [Concomitant]
     Active Substance: AMIKACIN SULFATE
     Indication: PNEUMONIA
     Dosage: 500 MILLIGRAM
     Route: 065
     Dates: start: 20180618, end: 20180626
  12. DIPROSALIC [Concomitant]
     Active Substance: BETAMETHASONE DIPROPIONATE
     Indication: PSORIASIS
     Dosage: 1 DOSAGE FORMS
     Route: 061
     Dates: start: 20180613
  13. FORTUM [Concomitant]
     Active Substance: CEFTAZIDIME
     Indication: PNEUMONIA
     Dosage: 3 GRAM
     Route: 065
     Dates: start: 20180618, end: 20180626
  14. ACCOFIL [Concomitant]
     Active Substance: FILGRASTIM
     Indication: NEUTROPENIA
     Dosage: 48 MILLION INTERNATIONAL UNITS
     Route: 065
     Dates: start: 20180621, end: 20180709
  15. VEROSPIRON [Concomitant]
     Active Substance: SPIRONOLACTONE
     Indication: HYPERTENSION
     Dosage: 25 MILLIGRAM
     Route: 065
     Dates: start: 20180621

REACTIONS (5)
  - Ischaemia [Unknown]
  - Deep vein thrombosis [Unknown]
  - Cardiac failure [Fatal]
  - Sepsis [Unknown]
  - Pneumonia [Unknown]

NARRATIVE: CASE EVENT DATE: 20180710
